FAERS Safety Report 21212890 (Version 1)
Quarter: 2022Q3

REPORT INFORMATION
  Report Type: Spontaneous
  Country: US (occurrence: None)
  Receive Date: 20220814
  Receipt Date: 20220814
  Transmission Date: 20221027
  Serious: Yes (Disabling, Other)
  Sender: FDA-Public Use
  Company Number: None

PATIENT
  Age: 48 Year
  Sex: Male
  Weight: 81.19 kg

DRUGS (10)
  1. IBUPROFEN [Suspect]
     Active Substance: IBUPROFEN
     Indication: Surgery
     Dosage: FREQUENCY : 3 TIMES A DAY;?
     Route: 048
     Dates: start: 20220325, end: 20220329
  2. GARLIC [Suspect]
     Active Substance: GARLIC
  3. HYDROXYZINE HYDROCHLORIDE [Concomitant]
     Active Substance: HYDROXYZINE HYDROCHLORIDE
  4. DULOXETINE [Concomitant]
     Active Substance: DULOXETINE
  5. VITAMINS [Concomitant]
     Active Substance: VITAMINS
  6. OMEGA 3 [Concomitant]
     Active Substance: CAPSAICIN
  7. VITAMIN B12 [Concomitant]
     Active Substance: CYANOCOBALAMIN
  8. DEHYDRATED FRUIT POWDER [Concomitant]
  9. GARLIC GEL CAP [Concomitant]
  10. VITAMIN D3 [Concomitant]
     Active Substance: CHOLECALCIFEROL

REACTIONS (9)
  - Disturbance in attention [None]
  - Insomnia [None]
  - Anxiety [None]
  - Injury [None]
  - Balance disorder [None]
  - Dizziness [None]
  - Vertigo [None]
  - Blood pressure decreased [None]
  - Product contamination [None]

NARRATIVE: CASE EVENT DATE: 20220301
